FAERS Safety Report 8893053 (Version 3)
Quarter: 2013Q1

REPORT INFORMATION
  Report Type: Spontaneous
  Country: US (occurrence: None)
  Receive Date: 20121101
  Receipt Date: 20121226
  Transmission Date: 20140127
  Serious: Yes (Death, Hospitalization)
  Sender: FDA-Public Use
  Company Number: MPS1-1000806

PATIENT
  Age: 45 Year
  Sex: Female

DRUGS (17)
  1. ALDURAZYME [Suspect]
     Indication: MUCOPOLYSACCHARIDOSIS I
     Dosage: 1X/W
     Route: 042
     Dates: start: 200501, end: 20121020
  2. TYLENOL EXTRA-STRENGTH (PARACETAMOL) [Concomitant]
  3. MIDOL PMS (MEYPYRAMINE MALEATE, PAMABROM, PARACETAMOL) [Concomitant]
  4. ASCORBIC ACID (ASCORBIC ACID) [Concomitant]
  5. BACLOFEN (BACLOFEN) (BACLOFEN) [Concomitant]
  6. VICODIN [Concomitant]
  7. LORATIDINE [Concomitant]
  8. MUPIROCIN (MUPIROCIN) [Concomitant]
  9. ROXICODONE (OXYCODONE HYDROCHLORIDE) [Concomitant]
  10. SUMATRIPTAN (SUMATRIPTAN) [Concomitant]
  11. DEXTROSE IN LACTATED RINGER^S (CALCIUM CHLORIDE DIHYDRATE, GLUCOSE, POTASSIUM CHLORIDE, SODIUM CHLORIDE, SODIUM LACTATE) [Concomitant]
  12. DEXPRECEDEX [Concomitant]
  13. EPINEPHRINE (EPINEPHRINE) [Concomitant]
  14. FENTANYL (FENTANYL) [Concomitant]
  15. INSULIN (INSULIN HUMAN) [Concomitant]
  16. MILRINONE (MILRINONE) [Concomitant]
  17. VASOPRESSIN (VASOPRESSIN) [Concomitant]

REACTIONS (9)
  - Cardiac failure [None]
  - Mitral valve stenosis [None]
  - Aortic valve stenosis [None]
  - Metabolic disorder [None]
  - Left ventricular failure [None]
  - Blood pressure decreased [None]
  - Body temperature increased [None]
  - Cardio-respiratory arrest [None]
  - Post procedural complication [None]
